FAERS Safety Report 6574993-0 (Version None)
Quarter: 2010Q1

REPORT INFORMATION
  Report Type: 
  Country: None (occurrence: None)
  Receive Date: 20100201
  Receipt Date: 20100119
  Transmission Date: 20100710
  Serious: Yes (Death)
  Sender: FDA-Public Use
  Company Number: DE-1171517

PATIENT
  Sex: Female

DRUGS (2)
  1. FLUORESCEIN SODIUM INJECTION SOLUTION FOR INJECTION [Suspect]
     Indication: DIABETIC RETINOPATHY
     Dosage: 5 ML 1X, 1 ML/SEC, INTRAVENOUS BOLUS
     Route: 040
     Dates: start: 20090519, end: 20090519
  2. RAMIPRIL      NEXAL (RAMIPRIL) [Concomitant]

REACTIONS (12)
  - ARTERIOSCLEROSIS [None]
  - ASTHENIA [None]
  - CARDIAC FAILURE [None]
  - CORONARY ARTERY DISEASE [None]
  - HAEMODIALYSIS [None]
  - HEPATIC CONGESTION [None]
  - HYPOTENSION [None]
  - LICE INFESTATION [None]
  - MYOCARDIAL INFARCTION [None]
  - PULMONARY FIBROSIS [None]
  - PULMONARY OEDEMA [None]
  - SCRATCH [None]
